FAERS Safety Report 8330230-8 (Version None)
Quarter: 2012Q2

REPORT INFORMATION
  Report Type: 
  Country: None (occurrence: None)
  Receive Date: 20120502
  Receipt Date: 20120425
  Transmission Date: 20120825
  Serious: No
  Sender: FDA-Public Use
  Company Number: US-B.I. PHARMACEUTICALS,INC./RIDGEFIELD-2012-BP-04179BP

PATIENT
  Sex: Male
  Weight: 82.55 kg

DRUGS (7)
  1. SPIRIVA [Suspect]
     Indication: BRONCHITIS CHRONIC
     Dosage: 18 MCG
     Route: 055
     Dates: start: 20120304
  2. VITAMIN B COMPLEX CAP [Concomitant]
  3. PROAIR HFA [Concomitant]
     Route: 055
  4. MULTI-VITAMINS [Concomitant]
  5. ADVAIR DISKUS 100/50 [Suspect]
     Dosage: 2 PUF
     Route: 055
     Dates: start: 20120304
  6. CALCIUM CARBONATE/VITAMIN D3 [Concomitant]
  7. VIAGRA [Concomitant]
     Route: 048

REACTIONS (3)
  - SKIN DISCOLOURATION [None]
  - ERYTHEMA [None]
  - LIVEDO RETICULARIS [None]
